FAERS Safety Report 11833757 (Version 1)
Quarter: 2015Q4

REPORT INFORMATION
  Report Type: Spontaneous
  Country: US (occurrence: US)
  Receive Date: 20151214
  Receipt Date: 20151214
  Transmission Date: 20160305
  Serious: Yes (Death)
  Sender: FDA-Public Use
  Company Number: US-BAYER-2015-485212

PATIENT
  Age: 58 Year
  Sex: Male

DRUGS (2)
  1. ETHANOL [Suspect]
     Active Substance: ALCOHOL
     Route: 048
  2. LORATADINE. [Suspect]
     Active Substance: LORATADINE
     Route: 048

REACTIONS (1)
  - Toxicity to various agents [Fatal]
